FAERS Safety Report 19439859 (Version 2)
Quarter: 2021Q2

REPORT INFORMATION
  Report Type: Spontaneous
  Country: US (occurrence: US)
  Receive Date: 20210620
  Receipt Date: 20210622
  Transmission Date: 20210717
  Serious: No
  Sender: FDA-Public Use
  Company Number: US-SA-2021SA198455

PATIENT
  Age: 62 Year
  Sex: Male

DRUGS (1)
  1. LANTUS [Suspect]
     Active Substance: INSULIN GLARGINE
     Indication: TYPE 2 DIABETES MELLITUS
     Dosage: 46 UNITS ONCE A DAY
     Route: 065

REACTIONS (3)
  - Incorrect dose administered by device [Recovering/Resolving]
  - Injection site injury [Recovering/Resolving]
  - Device issue [Recovering/Resolving]
